FAERS Safety Report 17386752 (Version 1)
Quarter: 2020Q1

REPORT INFORMATION
  Report Type: Spontaneous
  Country: US (occurrence: US)
  Receive Date: 20200206
  Receipt Date: 20200206
  Transmission Date: 20200409
  Serious: Yes (Death, Life-Threatening, Other)
  Sender: FDA-Public Use
  Company Number: US-OTSUKA-2020_003629

PATIENT

DRUGS (6)
  1. VINCRISTINE [Suspect]
     Active Substance: VINCRISTINE
     Indication: ACUTE LYMPHOCYTIC LEUKAEMIA
     Dosage: 1.5 MG/M2, UNK, DAYS 10, 17, 24 AND 31)
     Route: 065
  2. DEXAMETHASONE. [Suspect]
     Active Substance: DEXAMETHASONE
     Indication: ACUTE LYMPHOCYTIC LEUKAEMIA
     Dosage: 20 MG/M2, BID (DAYS 8-12 AND 22-26)
     Route: 065
  3. METHOTREXATE. [Suspect]
     Active Substance: METHOTREXATE
     Indication: ACUTE LYMPHOCYTIC LEUKAEMIA
     Dosage: UNK
     Route: 037
  4. VORINOSTAT [Suspect]
     Active Substance: VORINOSTAT
     Indication: ACUTE LYMPHOCYTIC LEUKAEMIA
     Dosage: 180 MG/M2/DOSE (DAYS 2-7 AND 16-21)
     Route: 048
  5. DECITABINE. [Suspect]
     Active Substance: DECITABINE
     Indication: ACUTE LYMPHOCYTIC LEUKAEMIA
     Dosage: 10 MG/M2, UNK (DAYS 1-5 AND 15-19)
     Route: 042
  6. MITOXANTRONE [Suspect]
     Active Substance: MITOXANTRONE HYDROCHLORIDE
     Indication: ACUTE LYMPHOCYTIC LEUKAEMIA
     Dosage: 10 MG/M2, UNK (ON 8 AND 9 DAYS)
     Route: 065

REACTIONS (2)
  - Necrotising fasciitis [Fatal]
  - Pseudomonas infection [Unknown]
